FAERS Safety Report 10153966 (Version 2)
Quarter: 2014Q2

REPORT INFORMATION
  Report Type: Spontaneous
  Country: IT (occurrence: None)
  Receive Date: 20140502
  Receipt Date: 20140519
  Transmission Date: 20141212
  Serious: Yes (Life-Threatening)
  Sender: FDA-Public Use
  Company Number: 7284822

PATIENT
  Age: 48 Year
  Sex: Female

DRUGS (2)
  1. EUTIROX [Suspect]
     Indication: HYPOTHYROIDISM
     Dosage: 75 MCG (75 MCG, 1 IN 1 D)
  2. FERROGRAD C [Concomitant]

REACTIONS (10)
  - Agitation [None]
  - Anxiety [None]
  - Tachycardia [None]
  - Apparent life threatening event [None]
  - Agitation [None]
  - Headache [None]
  - Visual impairment [None]
  - Vertigo [None]
  - Panic reaction [None]
  - Thinking abnormal [None]
